FAERS Safety Report 25173394 (Version 2)
Quarter: 2025Q2

REPORT INFORMATION
  Report Type: Spontaneous
  Country: US (occurrence: US)
  Receive Date: 20250408
  Receipt Date: 20250429
  Transmission Date: 20250716
  Serious: Yes (Hospitalization)
  Sender: BRISTOL-MYERS SQUIBB COMPANY
  Company Number: US-BRISTOL-MYERS SQUIBB COMPANY-2025-050979

PATIENT
  Age: 58 Year
  Sex: Male

DRUGS (1)
  1. REVLIMID [Suspect]
     Active Substance: LENALIDOMIDE
     Indication: Plasma cell myeloma
     Dosage: NIGHTLY AT BEDTIME ON DAYS 1 TO 21 FOLLOWED BY 7 DAYS OFF FOR A 28-DAY CYCLE
     Route: 048
     Dates: start: 20250225

REACTIONS (1)
  - Toxicity to various agents [Unknown]
